FAERS Safety Report 4662578-2 (Version None)
Quarter: 2005Q2

REPORT INFORMATION
  Report Type: 
  Country: None (occurrence: None)
  Receive Date: 20050512
  Receipt Date: 20050505
  Transmission Date: 20051028
  Serious: Yes (Death, Life-Threatening)
  Sender: FDA-Public Use
  Company Number: ACC000022

PATIENT
  Age: 52 Year
  Sex: Male

DRUGS (1)
  1. DIPYRIDAMOLE [Suspect]
     Dosage: 75 MG; QD; UNKNOWN
     Dates: start: 20021101, end: 20021101

REACTIONS (11)
  - ARTERIAL OCCLUSIVE DISEASE [None]
  - ASPARTATE AMINOTRANSFERASE INCREASED [None]
  - BILIRUBIN CONJUGATED INCREASED [None]
  - BLOOD BILIRUBIN INCREASED [None]
  - DRUG INTERACTION INHIBITION [None]
  - DYSPNOEA [None]
  - HAEMOGLOBIN DECREASED [None]
  - HEPATOTOXICITY [None]
  - MULTI-ORGAN FAILURE [None]
  - PLATELET COUNT DECREASED [None]
  - SEPSIS [None]
